FAERS Safety Report 10930570 (Version 1)
Quarter: 2015Q1

REPORT INFORMATION
  Report Type: Spontaneous
  Country: IN (occurrence: IN)
  Receive Date: 20150319
  Receipt Date: 20150319
  Transmission Date: 20150721
  Serious: Yes (Other)
  Sender: FDA-Public Use
  Company Number: IN-APOTEX-2015AP007577

PATIENT
  Age: 34 Year
  Sex: Male

DRUGS (1)
  1. PAXIL [Suspect]
     Active Substance: PAROXETINE HYDROCHLORIDE
     Indication: DEPRESSION
     Dosage: 25 MG, QD
     Route: 065

REACTIONS (6)
  - Serotonin syndrome [Unknown]
  - Hyperreflexia [Recovered/Resolved]
  - Postural tremor [Recovered/Resolved]
  - Blood pressure increased [Unknown]
  - Tachycardia [Unknown]
  - Headache [Recovered/Resolved]
